FAERS Safety Report 24194864 (Version 1)
Quarter: 2024Q3

REPORT INFORMATION
  Report Type: Spontaneous
  Country: US (occurrence: US)
  Receive Date: 20240809
  Receipt Date: 20240809
  Transmission Date: 20241017
  Serious: No
  Sender: ASTELLAS
  Company Number: US-ASTELLAS-2024US016799

PATIENT
  Sex: Female

DRUGS (5)
  1. IZERVAY [Suspect]
     Active Substance: AVACINCAPTAD PEGOL SODIUM
     Indication: Dry age-related macular degeneration
     Dosage: 2 MG (0.1 ML), UNKNOWN FREQ. (INJECTED IN RIGHT EYE)
     Route: 050
     Dates: start: 202401, end: 202401
  2. IZERVAY [Suspect]
     Active Substance: AVACINCAPTAD PEGOL SODIUM
     Indication: Dry age-related macular degeneration
     Dosage: 2 MG (0.1 ML), UNKNOWN FREQ. (INJECTED IN RIGHT EYE)
     Route: 050
     Dates: start: 202401, end: 202401
  3. IZERVAY [Suspect]
     Active Substance: AVACINCAPTAD PEGOL SODIUM
     Indication: Dry age-related macular degeneration
     Dosage: 2 MG (0.1 ML), UNKNOWN FREQ. (INJECTED IN RIGHT EYE)
     Route: 050
     Dates: start: 202401, end: 202401
  4. IZERVAY [Suspect]
     Active Substance: AVACINCAPTAD PEGOL SODIUM
     Indication: Dry age-related macular degeneration
     Dosage: 2 MG (0.1 ML), UNKNOWN FREQ. (INJECTED IN RIGHT EYE)
     Route: 050
     Dates: start: 202401, end: 202401
  5. IZERVAY [Suspect]
     Active Substance: AVACINCAPTAD PEGOL SODIUM
     Indication: Dry age-related macular degeneration
     Dosage: 2 MG (0.1 ML), UNKNOWN FREQ. (INJECTED IN RIGHT EYE)
     Route: 050
     Dates: start: 202401, end: 202401

REACTIONS (1)
  - Eye oedema [Recovered/Resolved]
